FAERS Safety Report 19402330 (Version 2)
Quarter: 2024Q2

REPORT INFORMATION
  Report Type: Spontaneous
  Country: US (occurrence: US)
  Receive Date: 20210610
  Receipt Date: 20240510
  Transmission Date: 20240716
  Serious: No
  Sender: FDA-Public Use
  Company Number: US-COLLEGIUM PHARMACEUTICAL, INC.-2020CGM00192

PATIENT

DRUGS (3)
  1. XTAMPZA ER [Suspect]
     Active Substance: OXYCODONE
     Indication: Pain
     Dosage: 9 MILLIGRAM, BID
  2. XTAMPZA ER [Suspect]
     Active Substance: OXYCODONE
     Dosage: 18 MILLIGRAM, UNKNOWN
  3. XTAMPZA ER [Suspect]
     Active Substance: OXYCODONE
     Dosage: 27 MILLIGRAM, UNKNOWN

REACTIONS (1)
  - Drug ineffective [Unknown]
